FAERS Safety Report 8235828-3 (Version None)
Quarter: 2012Q1

REPORT INFORMATION
  Report Type: 
  Country: None (occurrence: None)
  Receive Date: 20120326
  Receipt Date: 20120316
  Transmission Date: 20120608
  Serious: Yes (Hospitalization)
  Sender: FDA-Public Use
  Company Number: US-ELI_LILLY_AND_COMPANY-US201203005406

PATIENT
  Sex: Male

DRUGS (10)
  1. FORTEO [Suspect]
     Indication: OSTEOPOROSIS
     Dosage: 20 UG, QD
  2. KLOR-CON [Concomitant]
     Dosage: 8 MG, QD
  3. GLIPIZIDE [Concomitant]
     Dosage: 1.25 MG, QD
  4. FLORINEF [Concomitant]
     Dosage: 0.1 MG, QD
  5. AVODART [Concomitant]
     Dosage: 0.5 MG, QD
  6. PRAVASTATIN [Concomitant]
     Dosage: 40 MG, QD
  7. BUMEX [Concomitant]
     Dosage: 1 MG, BID
  8. OMEPRAZOLE [Concomitant]
     Dosage: 20 MG, QD
  9. ASPIRIN [Concomitant]
     Dosage: 81 MG, BID
  10. METOPROLOL SUCCINATE [Concomitant]
     Dosage: 12.5 MG, QD

REACTIONS (2)
  - ASTHENIA [None]
  - CARDIAC FAILURE [None]
